FAERS Safety Report 6358132-7 (Version None)
Quarter: 2009Q3

REPORT INFORMATION
  Report Type: 
  Country: None (occurrence: None)
  Receive Date: 20090916
  Receipt Date: 20090915
  Transmission Date: 20100115
  Serious: Yes (Other)
  Sender: FDA-Public Use
  Company Number: US-JNJFOC-20090707996

PATIENT
  Sex: Female
  Weight: 63.5 kg

DRUGS (7)
  1. SPORANOX [Suspect]
     Route: 048
  2. SPORANOX [Suspect]
     Indication: LUNG INFECTION
     Route: 048
  3. ITRACONAZOLE [Suspect]
     Indication: LUNG INFECTION
     Route: 065
  4. ADVAIR HFA [Concomitant]
     Indication: ASPERGILLOSIS
     Route: 042
  5. COMBIVENT [Concomitant]
     Indication: ASPERGILLOSIS
     Dosage: 3PUFFS
     Route: 045
  6. MINERAL TAB [Concomitant]
     Route: 048
  7. VITAMIN [Concomitant]
     Route: 048

REACTIONS (10)
  - ADRENAL DISORDER [None]
  - BLOOD CHOLESTEROL INCREASED [None]
  - BODY HEIGHT DECREASED [None]
  - COLON CANCER [None]
  - HYPERTENSION [None]
  - OSTEOPENIA [None]
  - PANCREATITIS [None]
  - RECTAL HAEMORRHAGE [None]
  - THYROID DISORDER [None]
  - TINEA PEDIS [None]
